FAERS Safety Report 9499889 (Version 1)
Quarter: 2013Q3

REPORT INFORMATION
  Report Type: Spontaneous
  Country: US (occurrence: None)
  Receive Date: 20130904
  Receipt Date: 20130904
  Transmission Date: 20140515
  Serious: Yes (Other)
  Sender: FDA-Public Use
  Company Number: None

PATIENT
  Age: 55 Year
  Sex: Female

DRUGS (15)
  1. ACTHAR [Suspect]
     Indication: RHEUMATOID ARTHRITIS
     Dosage: (1 ML)
     Route: 030
     Dates: start: 20130626, end: 20130801
  2. ACIDOPHILUS [Concomitant]
  3. FOLIC ACID [Concomitant]
  4. XANAX [Concomitant]
  5. AZMACORT [Concomitant]
  6. IBUPROFEN [Concomitant]
  7. NAPROSYN [Concomitant]
  8. SYNTHROID [Concomitant]
  9. RITUXAN [Concomitant]
  10. LANOXIN [Concomitant]
  11. VIT D 3 [Concomitant]
  12. VIT B [Concomitant]
  13. VIT E [Concomitant]
  14. IMITREX [Concomitant]
  15. RESTASIS [Concomitant]

REACTIONS (5)
  - Tremor [None]
  - Asthenia [None]
  - Feeling abnormal [None]
  - Blood pressure increased [None]
  - Heart rate increased [None]
